FAERS Safety Report 15457725 (Version 1)
Quarter: 2018Q4

REPORT INFORMATION
  Report Type: Spontaneous
  Country: US (occurrence: US)
  Receive Date: 20181003
  Receipt Date: 20181003
  Transmission Date: 20190204
  Serious: Yes (Death, Other)
  Sender: FDA-Public Use
  Company Number: US-BRISTOL-MYERS SQUIBB COMPANY-BMS-2018-091736

PATIENT
  Age: 54 Year
  Sex: Female
  Weight: 74.8 kg

DRUGS (1)
  1. APIXABAN [Suspect]
     Active Substance: APIXABAN
     Indication: CEREBROVASCULAR ACCIDENT PROPHYLAXIS
     Dosage: 2.5 MG, BID
     Route: 048

REACTIONS (4)
  - Prescribed underdose [Unknown]
  - Calciphylaxis [Fatal]
  - Haemorrhage [Unknown]
  - Product use issue [Unknown]
